FAERS Safety Report 15400207 (Version 1)
Quarter: 2018Q3

REPORT INFORMATION
  Report Type: Spontaneous
  Country: US (occurrence: US)
  Receive Date: 20180919
  Receipt Date: 20180919
  Transmission Date: 20181010
  Serious: No
  Sender: FDA-Public Use
  Company Number: US-BION-006665

PATIENT
  Age: 81 Year
  Sex: Male
  Weight: 81.65 kg

DRUGS (3)
  1. TOCOPHEROL [Concomitant]
     Active Substance: TOCOPHEROL
     Dosage: DOSE: 1000 MG/DAY FOR YEARS
  2. ZYRTEC [Suspect]
     Active Substance: CETIRIZINE HYDROCHLORIDE
     Indication: RHINORRHOEA
     Dosage: ONCE
     Route: 048
     Dates: start: 20170926
  3. ASCORBIC ACID. [Concomitant]
     Active Substance: ASCORBIC ACID
     Dosage: DOSE: 2000MG/DAY FROM YEARS

REACTIONS (1)
  - Drug ineffective [Not Recovered/Not Resolved]
